FAERS Safety Report 9156953 (Version 1)
Quarter: 2013Q1

REPORT INFORMATION
  Report Type: Spontaneous
  Country: JP (occurrence: None)
  Receive Date: 20130212
  Receipt Date: 20130212
  Transmission Date: 20140127
  Serious: Yes (Other)
  Sender: FDA-Public Use
  Company Number: 7191312

PATIENT
  Age: 50 Year
  Sex: Female

DRUGS (3)
  1. LEVOTHYROXINE [Suspect]
     Indication: HYPOPITUITARISM
  2. EXENATIDE (EXENATIDE) [Suspect]
     Indication: DIABETES MELLITUS
  3. HYDROCORTISONE (HYDROCORTISONE) [Concomitant]

REACTIONS (5)
  - Adrenal insufficiency [None]
  - Iatrogenic injury [None]
  - Fatigue [None]
  - Decreased appetite [None]
  - Hypotension [None]
